FAERS Safety Report 9462678 (Version 1)
Quarter: 2013Q3

REPORT INFORMATION
  Report Type: Spontaneous
  Country: US (occurrence: US)
  Receive Date: 20130816
  Receipt Date: 20130816
  Transmission Date: 20140515
  Serious: No
  Sender: FDA-Public Use
  Company Number: US-009507513-1308USA000376

PATIENT
  Age: 87 Year
  Sex: Female
  Weight: 50.79 kg

DRUGS (12)
  1. MIRALAX [Suspect]
     Indication: PRODUCT USED FOR UNKNOWN INDICATION
     Dosage: UNK, QPM
     Route: 048
     Dates: start: 200901
  2. MIRALAX [Suspect]
     Indication: MEDICAL OBSERVATION
  3. JANUVIA [Concomitant]
     Indication: DIABETES MELLITUS
     Dosage: UNK, UNKNOWN
  4. DEXILANT [Concomitant]
     Indication: GASTROOESOPHAGEAL REFLUX DISEASE
     Dosage: UNK, UNKNOWN
  5. FOLIC ACID [Concomitant]
     Indication: ANAEMIA
     Dosage: UNK, UNKNOWN
  6. NAMENDA [Concomitant]
     Indication: PRODUCT USED FOR UNKNOWN INDICATION
     Dosage: UNK, UNKNOWN
  7. EXELON (RIVASTIGMINE) [Concomitant]
     Indication: PRODUCT USED FOR UNKNOWN INDICATION
     Dosage: UNK, UNKNOWN
  8. WELLBUTRIN [Concomitant]
     Indication: ANXIETY
     Dosage: UNK, UNKNOWN
  9. XANAX [Concomitant]
     Indication: ANXIETY
     Dosage: UNK, UNKNOWN
  10. CITRACAL [Concomitant]
     Indication: PRODUCT USED FOR UNKNOWN INDICATION
     Dosage: UNK, UNKNOWN
  11. CALCIUM (UNSPECIFIED) [Concomitant]
     Indication: PRODUCT USED FOR UNKNOWN INDICATION
     Dosage: UNK, UNKNOWN
  12. PREDNISONE [Concomitant]
     Indication: MYALGIA
     Dosage: UNK, UNKNOWN

REACTIONS (2)
  - Incorrect drug administration duration [Unknown]
  - Product contamination physical [Unknown]
